FAERS Safety Report 9141613 (Version 1)
Quarter: 2013Q1

REPORT INFORMATION
  Report Type: Spontaneous
  Country: US (occurrence: US)
  Receive Date: 20130305
  Receipt Date: 20130305
  Transmission Date: 20140127
  Serious: No
  Sender: FDA-Public Use
  Company Number: US-AMGEN-USASP2013007991

PATIENT
  Age: 50 Year
  Sex: Female
  Weight: 75.28 kg

DRUGS (3)
  1. ENBREL [Suspect]
     Indication: PSORIASIS
     Dosage: 50 MG, QWK
     Route: 058
     Dates: start: 20120820
  2. ENBREL [Suspect]
     Indication: PSORIATIC ARTHROPATHY
  3. METHOTREXATE [Concomitant]
     Dosage: 6 TABLETS (2.5 MG EACH) ONCE A WEEK
     Route: 048
     Dates: start: 20120820

REACTIONS (6)
  - Blood glucose abnormal [Not Recovered/Not Resolved]
  - Pruritus [Recovered/Resolved]
  - Dry skin [Unknown]
  - Skin fissures [Unknown]
  - Dermatitis infected [Recovered/Resolved]
  - Psoriasis [Not Recovered/Not Resolved]
